FAERS Safety Report 10529878 (Version 1)
Quarter: 2014Q4

REPORT INFORMATION
  Report Type: Spontaneous
  Country: US (occurrence: US)
  Receive Date: 20141021
  Receipt Date: 20141021
  Transmission Date: 20150528
  Serious: No
  Sender: FDA-Public Use
  Company Number: US-009507513-1410USA004847

PATIENT
  Sex: Female
  Weight: 216 kg

DRUGS (2)
  1. NEXPLANON [Suspect]
     Active Substance: ETONOGESTREL
     Indication: CONTRACEPTION
     Dosage: DOSE/ FREQUENCY : 1 IMPLANT
     Route: 059
     Dates: start: 20140701
  2. IMPLANON [Concomitant]
     Active Substance: ETONOGESTREL
     Dosage: UNK
     Route: 059
     Dates: start: 20110628, end: 20140701

REACTIONS (7)
  - Implant site erythema [Unknown]
  - Medical device complication [Unknown]
  - Implant site pruritus [Unknown]
  - Implant site discharge [Unknown]
  - Implant site swelling [Unknown]
  - Pain in extremity [Unknown]
  - Implant site pain [Unknown]

NARRATIVE: CASE EVENT DATE: 2014
